FAERS Safety Report 4914971-8 (Version None)
Quarter: 2006Q1

REPORT INFORMATION
  Report Type: 
  Country: None (occurrence: None)
  Receive Date: 20060215
  Receipt Date: 20060215
  Transmission Date: 20060701
  Serious: Yes (Hospitalization)
  Sender: FDA-Public Use
  Company Number: None

PATIENT
  Sex: Male
  Weight: 77.1115 kg

DRUGS (7)
  1. HUMALOG [Suspect]
     Indication: DIABETES MELLITUS
  2. LASIX [Concomitant]
  3. COUMADIN [Concomitant]
  4. VASOTEC RPD [Concomitant]
  5. TENORMIN [Concomitant]
  6. LIPITOR [Concomitant]
  7. FOLIC ACID [Concomitant]

REACTIONS (1)
  - HYPOGLYCAEMIA [None]
